FAERS Safety Report 11977052 (Version 1)
Quarter: 2016Q1

REPORT INFORMATION
  Report Type: Spontaneous
  Country: US (occurrence: US)
  Receive Date: 20160129
  Receipt Date: 20160129
  Transmission Date: 20160526
  Serious: No
  Sender: FDA-Public Use
  Company Number: US-PERRIGO-15US007804

PATIENT
  Age: 55 Year
  Sex: Male
  Weight: 95.24 kg

DRUGS (4)
  1. PRAVASTATIN [Concomitant]
     Active Substance: PRAVASTATIN\PRAVASTATIN SODIUM
     Indication: BLOOD CHOLESTEROL INCREASED
     Dosage: 40 MG, UNKNOWN
     Route: 048
     Dates: start: 2014
  2. KLONOPIN [Concomitant]
     Active Substance: CLONAZEPAM
     Indication: INSOMNIA
     Dosage: 1 MG, UNKNOWN
     Route: 048
  3. IBUPROFEN AND DIPHENHYDRAMINE CITRATE [Suspect]
     Active Substance: DIPHENHYDRAMINE CITRATE\IBUPROFEN
     Indication: INSOMNIA
     Dosage: 2 TABLETS, QD
     Route: 048
     Dates: start: 201506, end: 20150726
  4. AMITRIPTYLINE [Concomitant]
     Active Substance: AMITRIPTYLINE
     Indication: INSOMNIA
     Dosage: 100 MG, UNKNOWN
     Route: 048

REACTIONS (5)
  - Gastrooesophageal reflux disease [Recovering/Resolving]
  - Off label use [Recovered/Resolved]
  - Nausea [Not Recovered/Not Resolved]
  - Abdominal distension [Not Recovered/Not Resolved]
  - Incorrect drug administration duration [Recovered/Resolved]

NARRATIVE: CASE EVENT DATE: 201506
